FAERS Safety Report 9602242 (Version 1)
Quarter: 2013Q4

REPORT INFORMATION
  Report Type: Spontaneous
  Country: FR (occurrence: FR)
  Receive Date: 20131007
  Receipt Date: 20131007
  Transmission Date: 20140711
  Serious: Yes (Hospitalization)
  Sender: FDA-Public Use
  Company Number: FR-ELI_LILLY_AND_COMPANY-FR201309009816

PATIENT
  Age: 78 Year
  Sex: Female

DRUGS (11)
  1. FORSTEO [Suspect]
     Indication: OSTEOPOROSIS
     Dosage: 20 UG, QD
     Route: 058
     Dates: start: 20130528, end: 201308
  2. DIGOXIN [Suspect]
     Indication: ATRIAL FIBRILLATION
     Dosage: 250 UG, QD
     Route: 048
     Dates: end: 201308
  3. FIXICAL VITAMINE D3 [Suspect]
     Indication: OSTEOPOROSIS
     Dosage: 500 MG, QD
     Route: 048
     Dates: start: 20130520, end: 201308
  4. ZYMAD [Concomitant]
     Indication: VITAMIN D DEFICIENCY
     Dosage: 200000 IU, QD
     Dates: start: 20130520, end: 20130520
  5. MORPHINE [Concomitant]
     Indication: PAIN
     Dosage: 10 MG, TID
     Dates: start: 20130528, end: 201308
  6. FENTANYL [Concomitant]
     Indication: PAIN
     Dosage: 2.1 MG, QD
     Route: 062
     Dates: start: 20130606, end: 20130801
  7. VOGALENE LYOC [Concomitant]
     Indication: NAUSEA
     Dosage: 7.5 MG, PRN
     Dates: start: 20130625, end: 201308
  8. CORDARONE [Concomitant]
     Indication: ATRIAL FIBRILLATION
     Dosage: 200 MG, QD
     Dates: start: 20130618
  9. PREVISCAN [Concomitant]
     Indication: THROMBOSIS PROPHYLAXIS
     Dosage: 10 MG, QD
     Dates: end: 20130731
  10. PREVISCAN [Concomitant]
     Dosage: 10 MG, QD
     Dates: start: 20130801
  11. TRIATEC [Concomitant]
     Indication: HYPERTENSION
     Dosage: UNK, QD

REACTIONS (11)
  - Confusional state [Recovered/Resolved]
  - Hallucination [Recovered/Resolved]
  - Vomiting [Recovered/Resolved]
  - Walking disability [Recovered/Resolved]
  - Cardioactive drug level increased [Recovered/Resolved]
  - Bradycardia [Unknown]
  - General physical health deterioration [Unknown]
  - Blood calcium decreased [Unknown]
  - Blood phosphorus decreased [Unknown]
  - International normalised ratio increased [Unknown]
  - Blood calcium increased [Unknown]
